FAERS Safety Report 15325184 (Version 3)
Quarter: 2018Q4

REPORT INFORMATION
  Report Type: Spontaneous
  Country: GB (occurrence: GB)
  Receive Date: 20180828
  Receipt Date: 20181108
  Transmission Date: 20190204
  Serious: Yes (Hospitalization)
  Sender: FDA-Public Use
  Company Number: GB-MYLANLABS-2018M1063824

PATIENT
  Sex: Female

DRUGS (1)
  1. CLOZARIL [Suspect]
     Active Substance: CLOZAPINE
     Indication: SCHIZOPHRENIA
     Dosage: UNK
     Route: 048
     Dates: start: 20101025, end: 2018

REACTIONS (7)
  - Mental impairment [Unknown]
  - Weight abnormal [Unknown]
  - Delusion [Unknown]
  - Contusion [Unknown]
  - Asthenia [Unknown]
  - Vein collapse [Unknown]
  - Aggression [Unknown]
